FAERS Safety Report 15610785 (Version 1)
Quarter: 2018Q4

REPORT INFORMATION
  Report Type: Spontaneous
  Country: US (occurrence: US)
  Receive Date: 20181113
  Receipt Date: 20181113
  Transmission Date: 20190205
  Serious: No
  Sender: FDA-Public Use
  Company Number: US-ROCHE-2037603

PATIENT
  Sex: Female

DRUGS (7)
  1. DOXYCYL [Concomitant]
     Active Substance: DOXYCYCLINE HYDROCHLORIDE
     Route: 065
  2. FML [Concomitant]
     Active Substance: FLUOROMETHOLONE
     Route: 065
  3. FLUZONE [Concomitant]
     Active Substance: INFLUENZA A VIRUS A/CALIFORNIA/7/2009 X-179A (H1N1) ANTIGEN (FORMALDEHYDE INACTIVATED)\INFLUENZA A VIRUS A/VICTORIA/210/2009 X-187 (H3N2) ANTIGEN (FORMALDEHYDE INACTIVATED)\INFLUENZA B VIRUS B/BRISBANE/60/2008 ANTIGEN (FORMALDEHYDE INACTIVATED)
     Dosage: 16-17 ?HIGH DOSE
     Route: 065
  4. SYNTHROID [Concomitant]
     Active Substance: LEVOTHYROXINE SODIUM
     Route: 065
  5. PICATO [Concomitant]
     Active Substance: INGENOL MEBUTATE
     Route: 065
  6. TOBRAMYCIN + DEXAMETHASONE EYE DROPS [Concomitant]
     Dosage: 0.3-0.1 %
     Route: 065
  7. LUCENTIS [Suspect]
     Active Substance: RANIBIZUMAB
     Indication: RETINAL VEIN OCCLUSION
     Dosage: BY THE PHYSICIAN INTO LEFT EYE
     Route: 065

REACTIONS (1)
  - Stress [Not Recovered/Not Resolved]
